FAERS Safety Report 9782491 (Version 1)
Quarter: 2013Q4

REPORT INFORMATION
  Report Type: Spontaneous
  Country: AU (occurrence: None)
  Receive Date: 20131220
  Receipt Date: 20131220
  Transmission Date: 20140711
  Serious: Yes (Other)
  Sender: FDA-Public Use
  Company Number: DSU-2013-05362

PATIENT
  Age: 60 Year
  Sex: Female
  Weight: 62 kg

DRUGS (3)
  1. OLMETEC (OLMESARTAN MEDOXOMIL) (TABLET) (OLMESARTAN MEDOXOMIL) [Suspect]
     Indication: ESSENTIAL HYPERTENSION
     Dosage: 20 MG ( 20 MG, QD), PER ORAL
     Route: 048
     Dates: start: 20110101, end: 20130915
  2. CRESTOR (ROSUVASTATIN) (ROSUVASTATIN) [Concomitant]
  3. OROXINE (LEVOTHYROXINE SODIUM) (LEVOTHYROXINE SODIUM) [Concomitant]

REACTIONS (7)
  - Nausea [None]
  - Vomiting [None]
  - Diarrhoea [None]
  - Dysphagia [None]
  - Protein-losing gastroenteropathy [None]
  - Helicobacter infection [None]
  - Weight decreased [None]
